FAERS Safety Report 8414728-X (Version None)
Quarter: 2012Q2

REPORT INFORMATION
  Report Type: 
  Country: None (occurrence: None)
  Receive Date: 20120605
  Receipt Date: 20120530
  Transmission Date: 20120825
  Serious: Yes (Hospitalization, Other)
  Sender: FDA-Public Use
  Company Number: DE-TEVA-340770GER

PATIENT
  Sex: Female
  Weight: 58 kg

DRUGS (6)
  1. PACLITAXEL [Suspect]
     Indication: BREAST CANCER
     Route: 042
     Dates: start: 20120321
  2. ANTIBIOTICS [Concomitant]
     Dates: start: 20120501
  3. LAPATINIB [Suspect]
     Indication: BREAST CANCER
     Dosage: 500 MILLIGRAM;
     Route: 048
     Dates: start: 20120321
  4. NIVESTIM [Concomitant]
     Dates: start: 20120522, end: 20120501
  5. DOXORUBICIN HCL [Suspect]
     Indication: BREAST CANCER
     Route: 042
     Dates: start: 20120321
  6. TRASTUZUMAB [Suspect]
     Indication: BREAST CANCER
     Route: 042
     Dates: start: 20120321

REACTIONS (2)
  - PNEUMONITIS [None]
  - PNEUMONIA [None]
